FAERS Safety Report 9895258 (Version 1)
Quarter: 2014Q1

REPORT INFORMATION
  Report Type: Spontaneous
  Country: US (occurrence: US)
  Receive Date: 20140213
  Receipt Date: 20140213
  Transmission Date: 20141002
  Serious: No
  Sender: FDA-Public Use
  Company Number: US-BRISTOL-MYERS SQUIBB COMPANY-17271172

PATIENT
  Age: 54 Year
  Sex: Female
  Weight: 120.18 kg

DRUGS (9)
  1. ORENCIA FOR INJ 250 MG/VIAL [Suspect]
     Dosage: 250MG VIAL
  2. PROTONIX [Concomitant]
     Dosage: 40MG
  3. METHOTREXATE TABS [Concomitant]
  4. NORVASC [Concomitant]
     Dosage: TABS
  5. FOLIC ACID [Concomitant]
     Dosage: TABS
  6. PROZAC [Concomitant]
     Dosage: CAPS
  7. VITAMIN D [Concomitant]
     Dosage: 1 DF: 1000 UNITS NOS
  8. CALCIUM [Concomitant]
     Dosage: 1 DF: 500 UNITS NOS ,TABS
  9. VITAMIN C [Concomitant]
     Dosage: CAPS

REACTIONS (1)
  - Drug ineffective [Unknown]
